FAERS Safety Report 8013397-0 (Version None)
Quarter: 2011Q4

REPORT INFORMATION
  Report Type: 
  Country: None (occurrence: None)
  Receive Date: 20111229
  Receipt Date: 20111215
  Transmission Date: 20120403
  Serious: Yes (Hospitalization)
  Sender: FDA-Public Use
  Company Number: FR-MYLANLABS-2011S1026074

PATIENT
  Age: 80 Year
  Sex: Male

DRUGS (1)
  1. AMIODARONE HCL [Suspect]
     Dosage: 200 MG/DAY
     Route: 065

REACTIONS (2)
  - COMA [None]
  - THYROTOXIC CRISIS [None]
